FAERS Safety Report 12603206 (Version 2)
Quarter: 2016Q3

REPORT INFORMATION
  Report Type: Report from Study
  Country: BR (occurrence: BR)
  Receive Date: 20160728
  Receipt Date: 20160930
  Transmission Date: 20161109
  Serious: Yes (Death)
  Sender: FDA-Public Use
  Company Number: BR-009507513-1607BRA011662

PATIENT
  Age: 89 Year
  Sex: Male

DRUGS (1)
  1. PRE TRIAL THERAPY [Suspect]
     Active Substance: UNSPECIFIED INGREDIENT
     Indication: METASTATIC MALIGNANT MELANOMA

REACTIONS (1)
  - Pulmonary embolism [Fatal]

NARRATIVE: CASE EVENT DATE: 20160504
